FAERS Safety Report 5878179-4 (Version None)
Quarter: 2008Q3

REPORT INFORMATION
  Report Type: 
  Country: None (occurrence: None)
  Receive Date: 20080911
  Receipt Date: 20080903
  Transmission Date: 20090109
  Serious: Yes (Other)
  Sender: FDA-Public Use
  Company Number: PHHY2008FR11761

PATIENT
  Sex: Male
  Weight: 69 kg

DRUGS (2)
  1. TRILEPTAL [Suspect]
     Indication: HERPES ZOSTER
     Dosage: 2400MG/DAY
     Dates: start: 20070520
  2. TRILEPTAL [Suspect]
     Dosage: 900MG/DAY

REACTIONS (4)
  - COORDINATION ABNORMAL [None]
  - EXTRAPYRAMIDAL DISORDER [None]
  - PARKINSONISM [None]
  - TREMOR [None]
